FAERS Safety Report 9951711 (Version 1)
Quarter: 2014Q1

REPORT INFORMATION
  Report Type: Report from Study
  Country: US (occurrence: US)
  Receive Date: 20140304
  Receipt Date: 20140304
  Transmission Date: 20141002
  Serious: No
  Sender: FDA-Public Use
  Company Number: US-ABBVIE-13P-163-1072113-00

PATIENT
  Age: 39 Year
  Sex: Female

DRUGS (6)
  1. HUMIRA [Suspect]
     Indication: COLITIS ULCERATIVE
     Dates: start: 20130312, end: 20130312
  2. HUMIRA [Suspect]
     Dates: start: 20130326, end: 20130326
  3. PURINETHOL [Suspect]
  4. PURINETHOL [Suspect]
     Dates: start: 20130327
  5. SYNTHROID [Concomitant]
     Indication: THYROID DISORDER
  6. TOPAMAX [Concomitant]
     Indication: HEADACHE
     Dosage: AT NIGHT

REACTIONS (3)
  - White blood cell count decreased [Recovering/Resolving]
  - Hypersensitivity [Recovering/Resolving]
  - Red blood cell count decreased [Recovering/Resolving]
